FAERS Safety Report 14454841 (Version 2)
Quarter: 2018Q1

REPORT INFORMATION
  Report Type: Report from Study
  Country: US (occurrence: HU)
  Receive Date: 20180129
  Receipt Date: 20180305
  Transmission Date: 20180509
  Serious: Yes (Other)
  Sender: FDA-Public Use
  Company Number: US-SUNOVION-2018SUN000277

PATIENT

DRUGS (3)
  1. TEGRETOL [Suspect]
     Active Substance: CARBAMAZEPINE
     Indication: PRODUCT USED FOR UNKNOWN INDICATION
     Dosage: UNK
     Route: 065
  2. INDACATEROL AND GLYCOPYRROLATE [Suspect]
     Active Substance: GLYCOPYRROLATE\INDACATEROL MALEATE
     Indication: CHRONIC OBSTRUCTIVE PULMONARY DISEASE
     Dosage: 1 DF, QD
     Route: 055
     Dates: start: 20171219
  3. FRONTIN [Concomitant]
     Active Substance: ALPRAZOLAM

REACTIONS (9)
  - Fall [Unknown]
  - Dysstasia [Unknown]
  - Extradural haematoma [Unknown]
  - Dyspnoea exertional [Unknown]
  - Epilepsy [Recovered/Resolved]
  - Chronic obstructive pulmonary disease [Unknown]
  - Alcoholism [Unknown]
  - Contusion [Unknown]
  - Cough [Unknown]
